FAERS Safety Report 6326032-4 (Version None)
Quarter: 2009Q3

REPORT INFORMATION
  Report Type: 
  Country: None (occurrence: None)
  Receive Date: 20090824
  Receipt Date: 20090814
  Transmission Date: 20100115
  Serious: Yes (Hospitalization)
  Sender: FDA-Public Use
  Company Number: US-ROCHE-651280

PATIENT
  Age: 29 Year
  Sex: Female

DRUGS (8)
  1. MYCOPHENOLATE MOFETIL [Suspect]
     Indication: CHRONIC GRAFT VERSUS HOST DISEASE
     Route: 048
  2. MYCOPHENOLATE MOFETIL [Suspect]
     Route: 048
  3. MYCOPHENOLATE MOFETIL [Suspect]
     Route: 048
  4. TACROLIMUS [Suspect]
     Indication: CHRONIC GRAFT VERSUS HOST DISEASE
     Route: 065
  5. TACROLIMUS [Suspect]
     Route: 065
  6. PREDNISONE TAB [Suspect]
     Indication: CHRONIC GRAFT VERSUS HOST DISEASE
     Route: 065
  7. PREDNISONE TAB [Suspect]
     Route: 065
  8. RITUXAN [Concomitant]

REACTIONS (5)
  - BACTERAEMIA [None]
  - CYTOMEGALOVIRUS INFECTION [None]
  - GRAFT VERSUS HOST DISEASE [None]
  - PNEUMONIA BACTERIAL [None]
  - WOUND INFECTION BACTERIAL [None]
